FAERS Safety Report 8946976 (Version 2)
Quarter: 2013Q1

REPORT INFORMATION
  Report Type: Spontaneous
  Country: US (occurrence: US)
  Receive Date: 20121205
  Receipt Date: 20130124
  Transmission Date: 20140127
  Serious: No
  Sender: FDA-Public Use
  Company Number: US-PFIZER INC-2012300932

PATIENT
  Age: 67 Year
  Sex: Male
  Weight: 79.37 kg

DRUGS (12)
  1. DIFLUCAN [Suspect]
     Indication: COCCIDIOIDOMYCOSIS
     Dosage: 400 MG (TWO TABLETS OF 200MG), 1X/DAY
     Route: 048
     Dates: start: 2002, end: 2003
  2. FLUCONAZOLE [Suspect]
     Indication: COCCIDIOIDOMYCOSIS
     Dosage: 400 MG (TWO TABLETS OF 200MG), 1X/DAY
     Route: 048
     Dates: start: 2003, end: 2003
  3. FLUCONAZOLE [Suspect]
     Dosage: 200 MG, 1X/DAY
     Route: 048
     Dates: start: 200711, end: 200806
  4. SPIRIVA [Concomitant]
     Dosage: UNK
     Dates: start: 1995
  5. FORADIL [Concomitant]
     Dosage: UNK
     Dates: start: 1995
  6. SINGULAIR [Concomitant]
     Dosage: UNK
     Dates: start: 1995
  7. PULMICORT [Concomitant]
     Dosage: UNK
     Dates: start: 1995
  8. NASONEX [Concomitant]
     Dosage: UNK
     Dates: start: 1995
  9. IBUPROFEN [Concomitant]
     Dosage: UNK
     Dates: start: 1995
  10. ACTONEL [Concomitant]
     Dosage: UNK
     Dates: start: 1995
  11. PROLASTIN [Concomitant]
     Dosage: UNK
     Dates: start: 1995
  12. PROVENTIL [Concomitant]
     Dosage: UNK
     Dates: start: 1995

REACTIONS (2)
  - Oesophageal disorder [Recovered/Resolved]
  - Oesophageal pain [Recovered/Resolved]
